FAERS Safety Report 23595391 (Version 1)
Quarter: 2024Q1

REPORT INFORMATION
  Report Type: Spontaneous
  Country: PL (occurrence: PL)
  Receive Date: 20240305
  Receipt Date: 20240305
  Transmission Date: 20240410
  Serious: Yes (Other)
  Sender: FDA-Public Use
  Company Number: None

PATIENT
  Age: 61 Year
  Sex: Female

DRUGS (1)
  1. OXALIPLATIN [Suspect]
     Active Substance: OXALIPLATIN
     Dosage: 140 MG; THE PATIENT WAS ADMINISTERED ABOUT 50 ML OXALIPLATIN.
     Route: 042
     Dates: start: 20210104, end: 20210104

REACTIONS (5)
  - Hyperhidrosis [Unknown]
  - Blood pressure decreased [Unknown]
  - Erythema [Unknown]
  - Dyspnoea [Unknown]
  - Hypersensitivity [Unknown]

NARRATIVE: CASE EVENT DATE: 20210104
